FAERS Safety Report 16906720 (Version 5)
Quarter: 2020Q2

REPORT INFORMATION
  Report Type: Report from Study
  Country: US (occurrence: US)
  Receive Date: 20191011
  Receipt Date: 20200430
  Transmission Date: 20200713
  Serious: Yes (Other)
  Sender: FDA-Public Use
  Company Number: US-ACADIA PHARMACEUTICALS INC.-ACA-2019-014293

PATIENT
  Sex: Male

DRUGS (2)
  1. NUPLAZID [Suspect]
     Active Substance: PIMAVANSERIN TARTRATE
     Indication: PARKINSON^S DISEASE
     Dosage: UNK
     Route: 048
  2. NUPLAZID [Suspect]
     Active Substance: PIMAVANSERIN TARTRATE
     Indication: HALLUCINATION
     Dosage: 34 MILLIGRAM, QD
     Route: 048
     Dates: start: 20200317, end: 2020

REACTIONS (5)
  - Bone marrow disorder [Unknown]
  - Hallucination [Unknown]
  - Refusal of treatment by patient [Unknown]
  - Drug ineffective [Unknown]
  - Anaemia [Not Recovered/Not Resolved]
